FAERS Safety Report 14380227 (Version 1)
Quarter: 2018Q1

REPORT INFORMATION
  Report Type: Spontaneous
  Country: US (occurrence: US)
  Receive Date: 20180111
  Receipt Date: 20180111
  Transmission Date: 20180509
  Serious: Yes (Hospitalization)
  Sender: FDA-Public Use
  Company Number: None

PATIENT
  Age: 47 Year
  Sex: Male
  Weight: 198 kg

DRUGS (15)
  1. FOIROSEMIDE [Concomitant]
  2. GLIPIZIDE. [Concomitant]
     Active Substance: GLIPIZIDE
  3. TINAZIDINE [Concomitant]
     Active Substance: TIZANIDINE
  4. MAGNESIUM [Concomitant]
     Active Substance: MAGNESIUM
  5. ATENOLOL. [Concomitant]
     Active Substance: ATENOLOL
  6. JAKAFI [Suspect]
     Active Substance: RUXOLITINIB
     Indication: POLYCYTHAEMIA VERA
     Dosage: ?          QUANTITY:60 TABLET(S);?
     Route: 048
  7. MULTI VITAMINS [Concomitant]
     Active Substance: VITAMINS
  8. INSULIN [Concomitant]
     Active Substance: INSULIN NOS
  9. VITAMIN D [Concomitant]
     Active Substance: CHOLECALCIFEROL
  10. LOSARTAN. [Concomitant]
     Active Substance: LOSARTAN
  11. METFORMIN [Concomitant]
     Active Substance: METFORMIN HYDROCHLORIDE
  12. OXYCODONE [Concomitant]
     Active Substance: OXYCODONE
  13. HYDROXYUREA. [Concomitant]
     Active Substance: HYDROXYUREA
  14. NUVIGIL [Concomitant]
     Active Substance: ARMODAFINIL
  15. SOMA [Concomitant]
     Active Substance: CARISOPRODOL

REACTIONS (2)
  - Hip arthroplasty [None]
  - Staphylococcal infection [None]

NARRATIVE: CASE EVENT DATE: 20170310
